FAERS Safety Report 4445794-4 (Version None)
Quarter: 2004Q3

REPORT INFORMATION
  Report Type: 
  Country: None (occurrence: None)
  Receive Date: 20040903
  Receipt Date: 20031009
  Transmission Date: 20050211
  Serious: Yes (Hospitalization)
  Sender: FDA-Public Use
  Company Number: 2003-DE-04816GD

PATIENT
  Age: 77 Year
  Sex: Female

DRUGS (3)
  1. ATROVENT [Suspect]
     Indication: ASTHMA
     Route: 055
  2. ALBUTEROL [Suspect]
     Indication: ASTHMA
     Route: 055
  3. HYDROCHLOROTHIAZIDE [Suspect]
     Indication: HYPERTENSION

REACTIONS (17)
  - BLOOD POTASSIUM DECREASED [None]
  - BLOOD SODIUM DECREASED [None]
  - CARDIAC ASTHMA [None]
  - CARDIAC MURMUR [None]
  - CIRCULATORY COLLAPSE [None]
  - COMA [None]
  - DYSPNOEA EXACERBATED [None]
  - FIBRIN D DIMER INCREASED [None]
  - HEART RATE IRREGULAR [None]
  - HYPOTENSION [None]
  - HYPOTHERMIA [None]
  - HYPOVOLAEMIA [None]
  - OXYGEN SATURATION DECREASED [None]
  - PERIPHERAL COLDNESS [None]
  - PULSE ABNORMAL [None]
  - VENTRICULAR HYPERTROPHY [None]
  - WHEEZING [None]
